FAERS Safety Report 6549620-9 (Version None)
Quarter: 2010Q1

REPORT INFORMATION
  Report Type: 
  Country: None (occurrence: None)
  Receive Date: 20100125
  Receipt Date: 20100114
  Transmission Date: 20100710
  Serious: Yes (Hospitalization)
  Sender: FDA-Public Use
  Company Number: DE-ROCHE-680164

PATIENT
  Sex: Male
  Weight: 70 kg

DRUGS (3)
  1. BEVACIZUMAB [Suspect]
     Indication: COLORECTAL CANCER
     Dosage: LAST DOSE PRIOR TO SAE: 11 NOV 2009
     Route: 042
     Dates: start: 20091012
  2. CAPECITABINE [Suspect]
     Indication: COLORECTAL CANCER
     Dosage: LAST DOSE PRIOR TO SAE: 17 NOV 2009
     Route: 048
     Dates: start: 20091012
  3. OXALIPLATIN [Suspect]
     Indication: COLORECTAL CANCER
     Dosage: LAST DOSE PRIOR TO SAE: 11 NOV 2009
     Route: 042
     Dates: start: 20091012

REACTIONS (1)
  - FAILURE TO ANASTOMOSE [None]
